FAERS Safety Report 17628782 (Version 3)
Quarter: 2020Q2

REPORT INFORMATION
  Report Type: Spontaneous
  Country: US (occurrence: US)
  Receive Date: 20200406
  Receipt Date: 20200603
  Transmission Date: 20200713
  Serious: No
  Sender: FDA-Public Use
  Company Number: US-ASTRAZENECA-2020SE44063

PATIENT
  Age: 24701 Day
  Sex: Female
  Weight: 68 kg

DRUGS (21)
  1. ACETAMINOPHEN-HYDROCODON [Concomitant]
  2. MELATONIN [Concomitant]
     Active Substance: MELATONIN
  3. METOPROLOL TARTRATE. [Concomitant]
     Active Substance: METOPROLOL TARTRATE
  4. AMLODIPIN [Concomitant]
     Active Substance: AMLODIPINE BESYLATE
  5. SINGULAIR [Concomitant]
     Active Substance: MONTELUKAST SODIUM
  6. VENTOLIN HFA [Concomitant]
     Active Substance: ALBUTEROL SULFATE
  7. ALBUTEROL. [Concomitant]
     Active Substance: ALBUTEROL
  8. LINZESS [Concomitant]
     Active Substance: LINACLOTIDE
  9. CLONAZEPAM. [Concomitant]
     Active Substance: CLONAZEPAM
  10. TRAZODONE [Concomitant]
     Active Substance: TRAZODONE HYDROCHLORIDE
  11. POTASSIUM CHLORIDE. [Concomitant]
     Active Substance: POTASSIUM CHLORIDE
  12. OXYGEN. [Concomitant]
     Active Substance: OXYGEN
  13. PROBIOTIC [Concomitant]
     Active Substance: PROBIOTICS NOS
  14. SPIRIVA [Concomitant]
     Active Substance: TIOTROPIUM BROMIDE MONOHYDRATE
  15. SUCRALFATE. [Concomitant]
     Active Substance: SUCRALFATE
  16. PRAVASTATIN. [Concomitant]
     Active Substance: PRAVASTATIN
  17. SYMBICORT [Suspect]
     Active Substance: BUDESONIDE\FORMOTEROL FUMARATE DIHYDRATE
     Indication: CHRONIC OBSTRUCTIVE PULMONARY DISEASE
     Dosage: 160/4.5 MCG/ INH, 2 PUFFS INHALED TWO TIMES A DAY (GENERIC)
     Route: 055
  18. SYMBICORT [Suspect]
     Active Substance: BUDESONIDE\FORMOTEROL FUMARATE DIHYDRATE
     Indication: CHRONIC OBSTRUCTIVE PULMONARY DISEASE
     Dosage: 160/4.5 MCG/ INH, 2 PUFFS INHALED TWO TIMES A DAY
     Route: 055
     Dates: start: 201511
  19. LASIX [Concomitant]
     Active Substance: FUROSEMIDE
  20. TIZANIDINE. [Concomitant]
     Active Substance: TIZANIDINE
  21. GABAPENTIN. [Concomitant]
     Active Substance: GABAPENTIN

REACTIONS (5)
  - Nervousness [Unknown]
  - Device physical property issue [Unknown]
  - Fatigue [Unknown]
  - Product dose omission [Unknown]
  - Tremor [Unknown]

NARRATIVE: CASE EVENT DATE: 20200323
